FAERS Safety Report 8418345-7 (Version None)
Quarter: 2012Q2

REPORT INFORMATION
  Report Type: 
  Country: None (occurrence: None)
  Receive Date: 20120323
  Receipt Date: 20110217
  Transmission Date: 20120825
  Serious: Yes (Other)
  Sender: FDA-Public Use
  Company Number: 163-21880-11022137

PATIENT
  Age: 64 Year
  Sex: Female

DRUGS (1)
  1. REVLIMID [Suspect]
     Indication: MULTIPLE MYELOMA
     Dosage: 25 MG, ONCE EVERY DAY FOR 21 DAYS, PO
     Route: 048
     Dates: start: 20090326

REACTIONS (3)
  - HEART RATE INCREASED [None]
  - FALL [None]
  - BLOOD PRESSURE DECREASED [None]
